FAERS Safety Report 8915109 (Version 4)
Quarter: 2013Q2

REPORT INFORMATION
  Report Type: Report from Study
  Country: JP (occurrence: JP)
  Receive Date: 20121119
  Receipt Date: 20130624
  Transmission Date: 20140414
  Serious: Yes (Hospitalization, Other)
  Sender: FDA-Public Use
  Company Number: JP-VERTEX PHARMACEUTICAL INC.-AE-2012-011714

PATIENT
  Age: 65 Year
  Sex: Female

DRUGS (18)
  1. VX-950 (TELAPREVIR) [Suspect]
     Indication: CHRONIC HEPATITIS C
     Dosage: 1500 MG, QD
     Route: 048
     Dates: start: 20120424, end: 20120522
  2. VX-950 (TELAPREVIR) [Suspect]
     Dosage: 1000 MG, QD
     Route: 048
     Dates: start: 20120522, end: 20120618
  3. VX-950 (TELAPREVIR) [Suspect]
     Dosage: 1000 MG, QD
     Route: 048
     Dates: start: 20120624
  4. RIBAVIRIN [Suspect]
     Indication: CHRONIC HEPATITIS C
     Dosage: 600 MG, QD
     Route: 048
     Dates: start: 20120424, end: 20120507
  5. RIBAVIRIN [Suspect]
     Dosage: 200 MG, QD
     Route: 048
     Dates: start: 20120508, end: 20120522
  6. RIBAVIRIN [Suspect]
     Dosage: 200 MG, QOD
     Route: 048
     Dates: start: 20120522, end: 20120618
  7. RIBAVIRIN [Suspect]
     Dosage: 200 MG, QOD
     Route: 048
     Dates: start: 20120624, end: 20120813
  8. RIBAVIRIN [Suspect]
     Dosage: 200 MG, QD
     Route: 048
     Dates: start: 20120814, end: 20120911
  9. RIBAVIRIN [Suspect]
     Dosage: 400 MG, QD
     Route: 048
     Dates: start: 20120912, end: 20121008
  10. PEGINTERFERON ALFA-2B [Suspect]
     Indication: CHRONIC HEPATITIS C
     Dosage: 1.5 ?G/KG, QW
     Route: 058
     Dates: start: 20120424, end: 20120612
  11. PEGINTERFERON ALFA-2B [Suspect]
     Dosage: 1.5 ?G/KG, QW
     Route: 058
     Dates: start: 20120624, end: 20121002
  12. MAINTATE [Concomitant]
     Dosage: 5 MG, QD
     Route: 048
     Dates: start: 20120403
  13. CELECOX [Concomitant]
     Dosage: 200 MG, QD
     Route: 048
     Dates: start: 20120502, end: 20121008
  14. MUCOSTA [Concomitant]
     Dosage: 200 MG, QD
     Route: 048
     Dates: start: 20120502, end: 20121105
  15. FEBURIC [Concomitant]
     Dosage: 30 MG, QD
     Route: 048
     Dates: start: 20120613, end: 20120827
  16. FEBURIC [Concomitant]
     Dosage: 20 MG, QD
     Route: 048
     Dates: start: 20120911
  17. ALLEGRA [Concomitant]
     Dosage: 120 MG, QD
     Route: 048
     Dates: end: 20121025
  18. RINDERON V [Concomitant]
     Dosage: UNK, PRN
     Route: 061

REACTIONS (2)
  - White blood cell count decreased [Not Recovered/Not Resolved]
  - Urinary tract infection [Recovered/Resolved]
